FAERS Safety Report 4920061-0 (Version None)
Quarter: 2006Q1

REPORT INFORMATION
  Report Type: 
  Country: None (occurrence: None)
  Receive Date: 20060223
  Receipt Date: 20060216
  Transmission Date: 20060701
  Serious: Yes (Hospitalization)
  Sender: FDA-Public Use
  Company Number: FR-AVENTIS-200610691FR

PATIENT
  Age: 61 Year
  Sex: Female

DRUGS (2)
  1. ARAVA [Suspect]
     Indication: RHEUMATOID ARTHRITIS
     Route: 048
     Dates: start: 20050501, end: 20051201
  2. ARAVA [Suspect]
     Route: 048
     Dates: start: 20060101

REACTIONS (1)
  - PLEURAL EFFUSION [None]
